FAERS Safety Report 10102247 (Version 2)
Quarter: 2014Q2

REPORT INFORMATION
  Report Type: Report from Study
  Country: CA (occurrence: CA)
  Receive Date: 20140424
  Receipt Date: 20140424
  Transmission Date: 20141212
  Serious: Yes (Death, Other)
  Sender: FDA-Public Use
  Company Number: CA-ROCHE-1296697

PATIENT
  Sex: Female
  Weight: 90 kg

DRUGS (13)
  1. CYMBALTA [Concomitant]
  2. ZOPICLONE [Concomitant]
  3. CINNAMON [Concomitant]
  4. FOLIC ACID [Concomitant]
  5. OMEGA 3 [Concomitant]
  6. DIPHENHYDRAMINE HCL [Concomitant]
     Indication: PREMEDICATION
     Route: 048
     Dates: start: 20131202, end: 20131216
  7. ACETAMINOPHEN [Concomitant]
     Indication: PREMEDICATION
     Route: 048
     Dates: start: 20131202, end: 20131216
  8. METHYLPREDNISOLONE [Concomitant]
     Indication: PREMEDICATION
     Route: 042
     Dates: start: 20131202, end: 20131216
  9. ACTEMRA [Suspect]
     Indication: RHEUMATOID ARTHRITIS
     Route: 042
     Dates: start: 20130718
  10. ACTEMRA [Suspect]
     Route: 042
     Dates: start: 20130816, end: 20131010
  11. RITUXAN [Suspect]
     Indication: RHEUMATOID ARTHRITIS
     Route: 042
     Dates: start: 20131202, end: 20131216
  12. AVALIDE [Concomitant]
     Route: 065
  13. LYRICA [Concomitant]

REACTIONS (2)
  - Post procedural infection [Fatal]
  - Stomatitis [Unknown]
